FAERS Safety Report 17828591 (Version 4)
Quarter: 2020Q3

REPORT INFORMATION
  Report Type: Spontaneous
  Country: JP (occurrence: JP)
  Receive Date: 20200527
  Receipt Date: 20200911
  Transmission Date: 20201102
  Serious: Yes (Hospitalization, Disabling, Other)
  Sender: FDA-Public Use
  Company Number: JP-ASTRAZENECA-2020SE68516

PATIENT
  Age: 28096 Day
  Sex: Female
  Weight: 44 kg

DRUGS (9)
  1. FASENRA [Suspect]
     Active Substance: BENRALIZUMAB
     Indication: ASTHMA
     Dosage: ONCE IN 4?8 WEEKS, 30 MG
     Route: 058
     Dates: start: 20200212, end: 20200408
  2. THEOPHYLLINE [Concomitant]
     Active Substance: THEOPHYLLINE ANHYDROUS
     Indication: ASTHMA
     Route: 048
  3. TSUMURA KAKKONTO EXTRACT GRANULES FOR ETHICAL USE [Concomitant]
     Indication: MUSCULOSKELETAL STIFFNESS
     Route: 048
  4. TALION [Concomitant]
     Route: 048
     Dates: start: 20200408
  5. ADRENAL HORMONE PREPARATIONS [Concomitant]
     Active Substance: UNSPECIFIED INGREDIENT
     Indication: ASTHMA
     Dosage: 1?2 MG EVEN UDER CONTINUOUS ADMINISTRATION WITH AS?REQUIRED USES.
     Route: 048
  6. SPIRIVA [Concomitant]
     Active Substance: TIOTROPIUM BROMIDE MONOHYDRATE
     Indication: ASTHMA
     Route: 055
  7. ALLEGRA [Concomitant]
     Active Substance: FEXOFENADINE HYDROCHLORIDE
     Route: 048
     Dates: start: 20200311, end: 20200409
  8. RELVAR [Concomitant]
     Active Substance: FLUTICASONE FUROATE\VILANTEROL TRIFENATATE
     Indication: ASTHMA
     Route: 055
  9. MONTELUKAST OD [Concomitant]
     Indication: ASTHMA
     Route: 048

REACTIONS (6)
  - Myocarditis [Unknown]
  - Mononeuropathy multiplex [Recovered/Resolved with Sequelae]
  - Bronchitis [Recovered/Resolved]
  - Urticaria [Recovered/Resolved]
  - Eosinophilic granulomatosis with polyangiitis [Recovered/Resolved with Sequelae]
  - SARS-CoV-2 test negative [Unknown]

NARRATIVE: CASE EVENT DATE: 20200226
